FAERS Safety Report 8193773-6 (Version None)
Quarter: 2012Q1

REPORT INFORMATION
  Report Type: 
  Country: None (occurrence: None)
  Receive Date: 20120308
  Receipt Date: 20120222
  Transmission Date: 20120608
  Serious: Yes (Hospitalization, Other)
  Sender: FDA-Public Use
  Company Number: US-WATSON-2012-03314

PATIENT
  Age: 34 Year
  Sex: Male

DRUGS (1)
  1. METRONIDAZOLE [Suspect]
     Indication: BACTEROIDES INFECTION
     Dosage: 500 MG, QID
     Route: 065
     Dates: start: 19990625

REACTIONS (12)
  - DIZZINESS [None]
  - SLOW SPEECH [None]
  - VOMITING [None]
  - NUCLEAR MAGNETIC RESONANCE IMAGING BRAIN ABNORMAL [None]
  - ABASIA [None]
  - ATAXIA [None]
  - NEUROPATHY PERIPHERAL [None]
  - NYSTAGMUS [None]
  - NERVOUS SYSTEM DISORDER [None]
  - JAUNDICE [None]
  - DISORIENTATION [None]
  - SPEECH DISORDER [None]
